FAERS Safety Report 25463288 (Version 1)
Quarter: 2025Q2

REPORT INFORMATION
  Report Type: Spontaneous
  Country: US (occurrence: US)
  Receive Date: 20250620
  Receipt Date: 20250620
  Transmission Date: 20250717
  Serious: Yes (Death, Other)
  Sender: PURDUE
  Company Number: US-PURDUE PHARMA-USA-2025-0318274

PATIENT
  Age: 11 Year
  Sex: Female

DRUGS (4)
  1. MORPHINE SULFATE [Suspect]
     Active Substance: MORPHINE SULFATE
     Indication: Pain management
     Route: 065
  2. MORPHINE SULFATE [Suspect]
     Active Substance: MORPHINE SULFATE
     Dosage: 15 MILLIGRAM, Q4H (EVERY FOUR HOURS AS NEEDED) (INCREASED)
     Route: 065
  3. GABAPENTIN [Suspect]
     Active Substance: GABAPENTIN
     Indication: Pain management
     Dosage: 100 MILLIGRAM, TID
     Route: 065
  4. HYDROXYZINE [Suspect]
     Active Substance: HYDROXYZINE HYDROCHLORIDE
     Indication: Product used for unknown indication
     Route: 065

REACTIONS (3)
  - Toxicity to various agents [Fatal]
  - Drug screen positive [Unknown]
  - Product prescribing issue [Unknown]

NARRATIVE: CASE EVENT DATE: 20201001
